FAERS Safety Report 15194550 (Version 8)
Quarter: 2020Q1

REPORT INFORMATION
  Report Type: Report from Study
  Country: US (occurrence: US)
  Receive Date: 20180725
  Receipt Date: 20200226
  Transmission Date: 20200409
  Serious: Yes (Hospitalization, Other)
  Sender: FDA-Public Use
  Company Number: PHEH2018US030314

PATIENT
  Sex: Female

DRUGS (2)
  1. GLEEVEC [Suspect]
     Active Substance: IMATINIB MESYLATE
     Indication: PRODUCT USED FOR UNKNOWN INDICATION
     Dosage: 100 MG, UNK
     Route: 048
  2. GLEEVEC [Suspect]
     Active Substance: IMATINIB MESYLATE
     Dosage: 400 MG, UNK
     Route: 065

REACTIONS (16)
  - Nasopharyngitis [Unknown]
  - Depression [Unknown]
  - Dyspepsia [Unknown]
  - Leukaemia [Unknown]
  - Speech disorder [Unknown]
  - Bronchitis [Unknown]
  - Anxiety [Unknown]
  - Gastrooesophageal reflux disease [Unknown]
  - Cough [Unknown]
  - Sight disability [Unknown]
  - Dizziness [Unknown]
  - Muscle spasms [Unknown]
  - Haematochezia [Unknown]
  - Platelet disorder [Unknown]
  - Influenza [Unknown]
  - Malaise [Unknown]
